FAERS Safety Report 10423992 (Version 2)
Quarter: 2014Q3

REPORT INFORMATION
  Report Type: Spontaneous
  Country: BR (occurrence: BR)
  Receive Date: 20140902
  Receipt Date: 20140902
  Transmission Date: 20150326
  Serious: Yes (Death, Hospitalization)
  Sender: FDA-Public Use
  Company Number: US-ASTRAZENECA-2014SE62907

PATIENT

DRUGS (8)
  1. SYNAGIS [Suspect]
     Active Substance: PALIVIZUMAB
     Indication: ANTIVIRAL PROPHYLAXIS
     Route: 030
  2. SYNAGIS [Suspect]
     Active Substance: PALIVIZUMAB
     Indication: PREMATURE BABY
     Dosage: 30/DAY
     Route: 030
     Dates: start: 200804
  3. SYNAGIS [Suspect]
     Active Substance: PALIVIZUMAB
     Indication: LUNG DISORDER
     Dosage: 30/DAY
     Route: 030
     Dates: start: 200804
  4. SYNAGIS [Suspect]
     Active Substance: PALIVIZUMAB
     Indication: PREMATURE BABY
     Route: 030
  5. SYNAGIS [Suspect]
     Active Substance: PALIVIZUMAB
     Indication: ANTIVIRAL PROPHYLAXIS
     Dosage: 30/DAY
     Route: 030
     Dates: start: 200804
  6. SYNAGIS [Suspect]
     Active Substance: PALIVIZUMAB
     Indication: CARDIOMYOPATHY
     Route: 030
  7. SYNAGIS [Suspect]
     Active Substance: PALIVIZUMAB
     Indication: CARDIOMYOPATHY
     Dosage: 30/DAY
     Route: 030
     Dates: start: 200804
  8. SYNAGIS [Suspect]
     Active Substance: PALIVIZUMAB
     Indication: LUNG DISORDER
     Route: 030

REACTIONS (7)
  - Septic shock [Fatal]
  - Cardiac operation [Fatal]
  - Bronchiolitis [Unknown]
  - Hypoplastic left heart syndrome [Fatal]
  - Respiratory syncytial virus test positive [Unknown]
  - Pneumonia [Fatal]
  - Respiratory tract infection [Unknown]
